FAERS Safety Report 7873459-5 (Version None)
Quarter: 2011Q4

REPORT INFORMATION
  Report Type: 
  Country: None (occurrence: None)
  Receive Date: 20111030
  Receipt Date: 20110504
  Transmission Date: 20120403
  Serious: No
  Sender: FDA-Public Use
  Company Number: US-AMGEN-USASP2011023034

PATIENT
  Age: 63 Year
  Sex: Male
  Weight: 104.31 kg

DRUGS (8)
  1. VITAMIN D [Concomitant]
  2. NIACIN [Concomitant]
     Dosage: 125 MG, UNK
  3. MULTIVITAMIN                       /00097801/ [Concomitant]
  4. FOLIC ACID [Concomitant]
     Dosage: 1 MG, UNK
  5. TRICOR [Concomitant]
     Dosage: 48 MG, UNK
  6. ENBREL [Suspect]
     Indication: PRODUCT USED FOR UNKNOWN INDICATION
     Dosage: 50 MG, 2 TIMES/WK
     Route: 058
  7. LESCOL XL [Concomitant]
     Dosage: 80 UNK, UNK
  8. FISH OIL [Concomitant]

REACTIONS (2)
  - PRURITUS GENERALISED [None]
  - PSORIASIS [None]
